FAERS Safety Report 12336783 (Version 1)
Quarter: 2016Q2

REPORT INFORMATION
  Report Type: Report from Study
  Country: US (occurrence: US)
  Receive Date: 20160505
  Receipt Date: 20160505
  Transmission Date: 20160815
  Serious: Yes (Other)
  Sender: FDA-Public Use
  Company Number: US-AMGEN-USASL2016055494

PATIENT
  Sex: Female

DRUGS (1)
  1. PROLIA [Suspect]
     Active Substance: DENOSUMAB
     Indication: PRODUCT USED FOR UNKNOWN INDICATION
     Dosage: UNK
     Route: 065

REACTIONS (8)
  - Parathyroid gland operation [Unknown]
  - Fracture [Unknown]
  - Osteoporosis [Unknown]
  - Thyroid operation [Unknown]
  - Arthritis [Unknown]
  - Fall [Unknown]
  - Pain [Unknown]
  - Back pain [Unknown]
